FAERS Safety Report 4263363-6 (Version None)
Quarter: 2004Q1

REPORT INFORMATION
  Report Type: 
  Country: None (occurrence: None)
  Receive Date: 20040105
  Receipt Date: 20031209
  Transmission Date: 20041129
  Serious: Yes (Life-Threatening, Hospitalization, Other)
  Sender: FDA-Public Use
  Company Number: WAES 0312GBR00114

PATIENT
  Sex: Male
  Weight: 100 kg

DRUGS (3)
  1. GOSERELIN ACETATE [Concomitant]
  2. VIOXX [Suspect]
     Route: 048
     Dates: start: 19990101, end: 20031128
  3. WARFARIN [Suspect]
     Dates: start: 19780101

REACTIONS (4)
  - DRUG INTERACTION [None]
  - DUODENITIS [None]
  - GASTROINTESTINAL HAEMORRHAGE [None]
  - INTERNATIONAL NORMALISED RATIO INCREASED [None]
